FAERS Safety Report 16313867 (Version 2)
Quarter: 2019Q2

REPORT INFORMATION
  Report Type: Spontaneous
  Country: US (occurrence: US)
  Receive Date: 20190515
  Receipt Date: 20190624
  Transmission Date: 20190711
  Serious: Yes (Hospitalization)
  Sender: FDA-Public Use
  Company Number: US-PFIZER INC-2019202191

PATIENT
  Age: 78 Year
  Sex: Female
  Weight: 74.84 kg

DRUGS (4)
  1. NEURONTIN [Suspect]
     Active Substance: GABAPENTIN
     Dosage: UNK
  2. NEURONTIN [Suspect]
     Active Substance: GABAPENTIN
     Indication: LUPUS-LIKE SYNDROME
     Dosage: 20 MG, 3X/DAY
     Dates: start: 2018
  3. NEURONTIN [Suspect]
     Active Substance: GABAPENTIN
     Dosage: 50 MG, 3X/DAY
     Dates: start: 2019, end: 2019
  4. NEURONTIN [Suspect]
     Active Substance: GABAPENTIN
     Indication: NEUROPATHY PERIPHERAL
     Dosage: 300 MG, 3X/DAY
     Route: 048

REACTIONS (5)
  - Off label use [Unknown]
  - Product use in unapproved indication [Unknown]
  - Condition aggravated [Recovered/Resolved]
  - Balance disorder [Recovered/Resolved]
  - Neuropathy peripheral [Recovered/Resolved]
